FAERS Safety Report 9507414 (Version 1)
Quarter: 2013Q3

REPORT INFORMATION
  Report Type: Spontaneous
  Country: US (occurrence: None)
  Receive Date: 20130906
  Receipt Date: 20130906
  Transmission Date: 20140515
  Serious: Yes (Death, Hospitalization)
  Sender: FDA-Public Use
  Company Number: None

PATIENT
  Age: 81 Year
  Sex: Male
  Weight: 81.3 kg

DRUGS (13)
  1. XARELTO [Suspect]
     Indication: ATRIAL FIBRILLATION
     Dosage: 20MG QD ORAL
     Route: 048
  2. XARELTO [Suspect]
     Indication: THROMBOSIS PROPHYLAXIS
     Dosage: 20MG QD ORAL
     Route: 048
  3. VALIUM [Concomitant]
  4. SYNTHROID [Concomitant]
  5. PROVENTIL [Concomitant]
  6. PLAVIX [Concomitant]
  7. LISINOPRIL [Concomitant]
  8. HYDRALAZINE [Concomitant]
  9. FLUOXETINE [Concomitant]
  10. BACLOFEN [Concomitant]
  11. ASPIRIN [Concomitant]
  12. AMLODIPINE [Concomitant]
  13. AMBIEN [Concomitant]

REACTIONS (6)
  - Abdominal pain [None]
  - Blood urine present [None]
  - Unresponsive to stimuli [None]
  - Haemoglobin decreased [None]
  - Catheter site haemorrhage [None]
  - Cardiac arrest [None]
